FAERS Safety Report 9858640 (Version 1)
Quarter: 2014Q1

REPORT INFORMATION
  Report Type: Spontaneous
  Country: US (occurrence: US)
  Receive Date: 20140131
  Receipt Date: 20140131
  Transmission Date: 20141002
  Serious: No
  Sender: FDA-Public Use
  Company Number: US-BAYER-2014-010156

PATIENT
  Age: 50 Year
  Sex: Male
  Weight: 63.49 kg

DRUGS (1)
  1. ALEVE CAPLET [Suspect]
     Indication: HANGOVER
     Dosage: 1 DF, ONCE
     Route: 048
     Dates: start: 20140117, end: 20140117

REACTIONS (4)
  - Pruritus [Not Recovered/Not Resolved]
  - Palmar erythema [Not Recovered/Not Resolved]
  - Erythema [Not Recovered/Not Resolved]
  - Intentional drug misuse [None]
